FAERS Safety Report 7482201-1 (Version None)
Quarter: 2011Q2

REPORT INFORMATION
  Report Type: 
  Country: None (occurrence: None)
  Receive Date: 20110516
  Receipt Date: 20110508
  Transmission Date: 20111010
  Serious: No
  Sender: FDA-Public Use
  Company Number: US-PFIZER INC-2011098836

PATIENT
  Sex: Female
  Weight: 65.76 kg

DRUGS (1)
  1. ADVIL LIQUI-GELS [Suspect]
     Indication: MIGRAINE
     Dosage: 200 MG, 2X/DAY

REACTIONS (1)
  - DRUG HYPERSENSITIVITY [None]
